FAERS Safety Report 24725374 (Version 1)
Quarter: 2024Q4

REPORT INFORMATION
  Report Type: Spontaneous
  Country: ES (occurrence: ES)
  Receive Date: 20241212
  Receipt Date: 20241212
  Transmission Date: 20250115
  Serious: Yes (Death, Hospitalization, Other)
  Sender: AUROBINDO
  Company Number: ES-AEMPS-1600881

PATIENT
  Age: 87 Year
  Sex: Female

DRUGS (1)
  1. APIXABAN [Suspect]
     Active Substance: APIXABAN
     Indication: Atrial fibrillation
     Dosage: 2.5 MILLIGRAM, TWO TIMES A DAY
     Route: 048
     Dates: start: 202312, end: 20241031

REACTIONS (2)
  - Tumour haemorrhage [Fatal]
  - Haemoperitoneum [Fatal]

NARRATIVE: CASE EVENT DATE: 20241026
